FAERS Safety Report 8228162-9 (Version None)
Quarter: 2012Q1

REPORT INFORMATION
  Report Type: 
  Country: None (occurrence: None)
  Receive Date: 20120322
  Receipt Date: 20111212
  Transmission Date: 20120608
  Serious: No
  Sender: FDA-Public Use
  Company Number: US-BRISTOL-MYERS SQUIBB COMPANY-16285421

PATIENT
  Sex: Male

DRUGS (1)
  1. ERBITUX [Suspect]
     Dosage: LOT # 6C0000213/1OC0000231/LOTC0000231. DURATN OF THERAPY:4-6 WEEKS.

REACTIONS (1)
  - RASH [None]
